FAERS Safety Report 6692026-2 (Version None)
Quarter: 2010Q2

REPORT INFORMATION
  Report Type: 
  Country: None (occurrence: None)
  Receive Date: 20100422
  Receipt Date: 20100420
  Transmission Date: 20101027
  Serious: No
  Sender: FDA-Public Use
  Company Number: SE-ROCHE-698396

PATIENT
  Age: 18 Year
  Sex: Female

DRUGS (1)
  1. ROACCUTAN [Suspect]
     Indication: ACNE
     Dosage: PULSE THERAPY. 2 X 20 MG DAILY FOR ONE WEEK WITH THREE WEEKS PAUSE, LAST DOSE PRIOR 08-14 MARCH 2010
     Route: 048
     Dates: start: 20100115

REACTIONS (2)
  - NO ADVERSE EVENT [None]
  - PREGNANCY [None]
